FAERS Safety Report 14148632 (Version 1)
Quarter: 2017Q4

REPORT INFORMATION
  Report Type: Spontaneous
  Country: US (occurrence: US)
  Receive Date: 20171031
  Receipt Date: 20171031
  Transmission Date: 20180321
  Serious: No
  Sender: FDA-Public Use
  Company Number: None

PATIENT

DRUGS (1)
  1. POTASSIUM CHLORIDE. [Suspect]
     Active Substance: POTASSIUM CHLORIDE
     Route: 042

REACTIONS (5)
  - Product packaging confusion [None]
  - Intercepted drug administration error [None]
  - Product label on wrong product [None]
  - Drug dispensing error [None]
  - Intercepted product storage error [None]

NARRATIVE: CASE EVENT DATE: 20171027
